FAERS Safety Report 14806995 (Version 1)
Quarter: 2018Q2

REPORT INFORMATION
  Report Type: Spontaneous
  Country: US (occurrence: US)
  Receive Date: 20180425
  Receipt Date: 20180425
  Transmission Date: 20180711
  Serious: No
  Sender: FDA-Public Use
  Company Number: US-ROCHE-2058602

PATIENT
  Sex: Female

DRUGS (2)
  1. OCREVUS [Suspect]
     Active Substance: OCRELIZUMAB
     Indication: MULTIPLE SCLEROSIS
     Dosage: FULL DOSE; ONGOING: NO
     Route: 042
     Dates: end: 20180117
  2. OCREVUS [Suspect]
     Active Substance: OCRELIZUMAB
     Dosage: DECREASED TO HALF DOSE DURING INFUSION;ONGOING: YES
     Route: 042
     Dates: start: 20180117

REACTIONS (1)
  - Throat tightness [Recovered/Resolved]

NARRATIVE: CASE EVENT DATE: 20180117
